FAERS Safety Report 20195886 (Version 2)
Quarter: 2022Q1

REPORT INFORMATION
  Report Type: Spontaneous
  Country: TR (occurrence: TR)
  Receive Date: 20211216
  Receipt Date: 20220202
  Transmission Date: 20220423
  Serious: Yes (Other)
  Sender: FDA-Public Use
  Company Number: TR-ELI_LILLY_AND_COMPANY-TR202112003959

PATIENT
  Age: 76 Year
  Sex: Female

DRUGS (7)
  1. BARICITINIB [Suspect]
     Active Substance: BARICITINIB
     Indication: Rheumatoid arthritis
     Dosage: 2 MG, DAILY
     Route: 048
     Dates: start: 20210928
  2. BARICITINIB [Suspect]
     Active Substance: BARICITINIB
     Dosage: 2 MG, QOD
     Route: 048
  3. METHYLPREDNISOLONE [Concomitant]
     Active Substance: METHYLPREDNISOLONE
     Dosage: UNK, UNKNOWN
     Route: 065
  4. CALCIUM\VITAMIN D [Concomitant]
     Active Substance: CALCIUM\VITAMIN D
     Dosage: UNK, UNKNOWN
     Route: 065
  5. ASPIRIN [Concomitant]
     Active Substance: ASPIRIN
     Dosage: UNK, UNKNOWN
     Route: 065
  6. DESLORATADINE [Concomitant]
     Active Substance: DESLORATADINE
     Dosage: UNK, UNKNOWN
     Route: 065
  7. ISONIAZID [Concomitant]
     Active Substance: ISONIAZID
     Dosage: UNK, UNKNOWN
     Route: 065

REACTIONS (2)
  - Leukopenia [Recovered/Resolved]
  - Viral diarrhoea [Unknown]
